FAERS Safety Report 9242471 (Version 3)
Quarter: 2014Q1

REPORT INFORMATION
  Report Type: Spontaneous
  Country: JP (occurrence: JP)
  Receive Date: 20130419
  Receipt Date: 20140120
  Transmission Date: 20141002
  Serious: Yes (Other)
  Sender: FDA-Public Use
  Company Number: JP-MILLENNIUM PHARMACEUTICALS, INC.-2012-08656

PATIENT
  Sex: 0

DRUGS (6)
  1. VELCADE [Suspect]
     Indication: PLASMA CELL MYELOMA
     Dosage: 1.3 MG/ML, CYCLIC
     Route: 042
     Dates: start: 201006, end: 201007
  2. DEXAMETHASONE [Suspect]
     Indication: PLASMA CELL MYELOMA
     Dosage: UNK
     Dates: start: 20080101, end: 2008
  3. ADRIAMYCIN [Suspect]
     Indication: PLASMA CELL MYELOMA
     Dosage: UNK
     Dates: start: 20080101, end: 2008
  4. ITRACONAZOLE [Suspect]
     Indication: PLASMA CELL MYELOMA
     Dosage: 200 MG, UNK
     Route: 048
     Dates: start: 201006, end: 201007
  5. VINCRISTINE [Suspect]
     Indication: PLASMA CELL MYELOMA
     Dosage: UNK
     Dates: start: 20080101, end: 2008
  6. DECADRON                           /00016001/ [Concomitant]
     Indication: PLASMA CELL MYELOMA
     Dosage: UNK, CYCLIC
     Route: 048
     Dates: start: 201006, end: 201007

REACTIONS (4)
  - Drug interaction [Unknown]
  - Platelet count decreased [Recovered/Resolved]
  - Neuropathy peripheral [Recovered/Resolved]
  - White blood cell count decreased [Recovered/Resolved]
